FAERS Safety Report 21275911 (Version 1)
Quarter: 2022Q3

REPORT INFORMATION
  Report Type: Spontaneous
  Country: US (occurrence: US)
  Receive Date: 20220831
  Receipt Date: 20220831
  Transmission Date: 20221027
  Serious: Yes (Other)
  Sender: FDA-Public Use
  Company Number: US-ABBVIE-22K-163-4243670-00

PATIENT
  Sex: Female
  Weight: 62.6 kg

DRUGS (4)
  1. HUMIRA [Suspect]
     Active Substance: ADALIMUMAB
     Indication: Product used for unknown indication
     Route: 058
  2. XELJANZ [Suspect]
     Active Substance: TOFACITINIB CITRATE
     Indication: Rheumatoid arthritis
     Dosage: ONCE A DAY
     Route: 065
     Dates: start: 2012
  3. XELJANZ [Suspect]
     Active Substance: TOFACITINIB CITRATE
     Dosage: TWICE A DAY
     Route: 065
  4. METHOTREXATE [Suspect]
     Active Substance: METHOTREXATE
     Indication: Product used for unknown indication
     Route: 065

REACTIONS (12)
  - Surgery [Unknown]
  - Gastric operation [Unknown]
  - Spinal operation [Unknown]
  - Hand deformity [Unknown]
  - Peripheral swelling [Unknown]
  - Pain in extremity [Unknown]
  - Therapeutic product effect decreased [Unknown]
  - Injection site pain [Unknown]
  - Drug hypersensitivity [Unknown]
  - Urticaria [Unknown]
  - Diarrhoea [Unknown]
  - Drug ineffective [Unknown]
